FAERS Safety Report 12344443 (Version 2)
Quarter: 2016Q2

REPORT INFORMATION
  Report Type: Spontaneous
  Country: US (occurrence: US)
  Receive Date: 20160507
  Receipt Date: 20160630
  Transmission Date: 20160815
  Serious: Yes (Hospitalization)
  Sender: FDA-Public Use
  Company Number: US-JNJFOC-20160402240

PATIENT
  Age: 79 Year
  Sex: Male

DRUGS (3)
  1. XARELTO [Suspect]
     Active Substance: RIVAROXABAN
     Indication: THROMBOSIS PROPHYLAXIS
     Dosage: 15 MG TWICE DAILY; 20 MG ONCE DAILY
     Route: 048
     Dates: start: 20120221, end: 20141207
  2. XARELTO [Suspect]
     Active Substance: RIVAROXABAN
     Indication: CEREBROVASCULAR ACCIDENT PROPHYLAXIS
     Dosage: 15 MG TWICE DAILY; 20 MG ONCE DAILY
     Route: 048
     Dates: start: 20120221, end: 20141207
  3. XARELTO [Suspect]
     Active Substance: RIVAROXABAN
     Indication: ATRIAL FIBRILLATION
     Dosage: 15 MG TWICE DAILY; 20 MG ONCE DAILY
     Route: 048
     Dates: start: 20120221, end: 20141207

REACTIONS (2)
  - Haemorrhagic cyst [Recovering/Resolving]
  - Haematemesis [Recovered/Resolved]

NARRATIVE: CASE EVENT DATE: 20141207
